FAERS Safety Report 5690846-4 (Version None)
Quarter: 2008Q2

REPORT INFORMATION
  Report Type: 
  Country: None (occurrence: None)
  Receive Date: 20080401
  Receipt Date: 20080327
  Transmission Date: 20081010
  Serious: Yes (Hospitalization)
  Sender: FDA-Public Use
  Company Number: SE-MERCK-0803SWE00015

PATIENT
  Age: 93 Year
  Sex: Female

DRUGS (10)
  1. COZAAR [Suspect]
     Indication: CARDIAC FAILURE
     Route: 048
     Dates: end: 20071118
  2. SPIRONOLACTONE [Suspect]
     Indication: CARDIAC FAILURE
     Route: 048
     Dates: end: 20071109
  3. ZOLPIDEM TARTRATE [Concomitant]
     Route: 065
  4. NITROGLYCERIN [Concomitant]
     Route: 065
  5. ACETAMINOPHEN [Concomitant]
     Route: 065
  6. LEVOMEPROMAZINE [Concomitant]
     Route: 065
  7. CYANOCOBALAMIN [Concomitant]
     Route: 051
  8. FUROSEMIDE [Concomitant]
     Route: 048
  9. ALLOPURINOL [Concomitant]
     Route: 065
  10. CLOPIDOGREL BISULFATE [Concomitant]
     Route: 065

REACTIONS (1)
  - RENAL FAILURE [None]
